FAERS Safety Report 9036235 (Version 1)
Quarter: 2013Q1

REPORT INFORMATION
  Report Type: Spontaneous
  Country: FR (occurrence: None)
  Receive Date: 20130114
  Receipt Date: 20130114
  Transmission Date: 20140127
  Serious: Yes (Hospitalization)
  Sender: FDA-Public Use
  Company Number: 1552659

PATIENT
  Age: 85 Year
  Sex: Female

DRUGS (7)
  1. OXALIPLATIN [Suspect]
     Indication: COLORECTAL CANCER
     Route: 041
     Dates: start: 20121004, end: 20121004
  2. RALTITREXED DISODIUM [Suspect]
     Indication: COLORECTAL CANCER
     Route: 041
     Dates: start: 20121004, end: 20121004
  3. ZOPHREN [Suspect]
     Indication: COLORECTAL CANCER
     Route: 041
     Dates: start: 20121004, end: 20121004
  4. METHYLPREDNISOLONE [Suspect]
     Indication: COLORECTAL CANCER
     Route: 041
     Dates: start: 20121004, end: 20121004
  5. MAGNESIUM SULPHATE [Suspect]
     Indication: COLORECTAL CANCER
     Route: 041
     Dates: start: 20121004, end: 20121004
  6. CALCIUM SULFATE [Suspect]
     Indication: COLORECTAL CANCER
     Route: 041
     Dates: start: 20121004, end: 20121004
  7. GLUCOSE [Concomitant]

REACTIONS (4)
  - Pulmonary oedema [None]
  - Oxygen saturation decreased [None]
  - Pyrexia [None]
  - Dyspnoea [None]
